FAERS Safety Report 4601036-8 (Version None)
Quarter: 2005Q1

REPORT INFORMATION
  Report Type: 
  Country: None (occurrence: None)
  Receive Date: 20050307
  Receipt Date: 20050307
  Transmission Date: 20050727
  Serious: Yes (Life-Threatening, Hospitalization, Disabling)
  Sender: FDA-Public Use
  Company Number: None

PATIENT
  Age: 34 Year
  Sex: Female
  Weight: 50.3493 kg

DRUGS (5)
  1. COUMADIN [Suspect]
     Indication: ATRIAL FIBRILLATION
     Dosage: 10 MILL     ONCE DAILY    ORAL
     Route: 048
     Dates: start: 20040218, end: 20040219
  2. COUMADIN [Suspect]
     Indication: THROMBOSIS PROPHYLAXIS
     Dosage: 10 MILL     ONCE DAILY    ORAL
     Route: 048
     Dates: start: 20040218, end: 20040219
  3. AMIODARONE      300 MILLIGRAMS [Suspect]
     Indication: ARRHYTHMIA PROPHYLAXIS
     Dosage: 300 MILL     ONCE DAY    ORAL
     Route: 048
     Dates: start: 20020727, end: 20050305
  4. ATENOLOL [Concomitant]
  5. LO-OVRAL BIRTH CONTROL [Concomitant]

REACTIONS (16)
  - ABDOMINAL DISTENSION [None]
  - ABDOMINAL PAIN UPPER [None]
  - CHILLS [None]
  - DIARRHOEA [None]
  - DIZZINESS [None]
  - DRUG INTERACTION [None]
  - DRUG TOXICITY [None]
  - EPISTAXIS [None]
  - FEELING ABNORMAL [None]
  - INTERNATIONAL NORMALISED RATIO INCREASED [None]
  - INTRACRANIAL ANEURYSM [None]
  - NAUSEA [None]
  - OVERDOSE [None]
  - PHOTOPHOBIA [None]
  - PROTHROMBIN TIME PROLONGED [None]
  - VOMITING [None]
